FAERS Safety Report 6070653-3 (Version None)
Quarter: 2009Q1

REPORT INFORMATION
  Report Type: 
  Country: None (occurrence: None)
  Receive Date: 20090209
  Receipt Date: 20090128
  Transmission Date: 20090719
  Serious: Yes (Life-Threatening, Hospitalization)
  Sender: FDA-Public Use
  Company Number: SG-PFIZER INC-2009152644

PATIENT

DRUGS (11)
  1. SUNITINIB MALATE [Suspect]
     Dosage: 37.5 MG, 1X/DAY
     Route: 048
     Dates: start: 20060620
  2. ATENOLOL [Concomitant]
     Dosage: UNK
     Route: 048
     Dates: start: 19900101
  3. SIMVASTATIN [Concomitant]
     Dosage: UNK
     Route: 048
     Dates: start: 19900101
  4. ALLOPURINOL [Concomitant]
     Dosage: UNK
     Route: 048
     Dates: start: 20060619
  5. ISOSORBIDE DINITRATE [Concomitant]
     Dosage: UNK
     Route: 048
     Dates: start: 20061228
  6. THYROXINE [Concomitant]
     Dosage: UNK
     Route: 048
     Dates: start: 20070208
  7. PYRIDOXINE [Concomitant]
     Dosage: UNK
     Route: 048
     Dates: start: 20061116
  8. GLUCO-S1500 (GLUCOSAMINE SULPHATE) [Concomitant]
     Dosage: UNK
     Route: 048
     Dates: start: 20080221
  9. LOMOTIL [Concomitant]
     Dosage: UNK
     Route: 048
     Dates: start: 20080403
  10. BETAMETHASONE 0.025% [Concomitant]
     Dosage: UNK
     Route: 061
     Dates: start: 20080626
  11. ACETYLCYSTEINE [Concomitant]
     Route: 048
     Dates: start: 20081211

REACTIONS (2)
  - ACUTE MYOCARDIAL INFARCTION [None]
  - CHEST DISCOMFORT [None]
